FAERS Safety Report 25407661 (Version 4)
Quarter: 2025Q2

REPORT INFORMATION
  Report Type: Spontaneous
  Country: GB (occurrence: GB)
  Receive Date: 20250606
  Receipt Date: 20250620
  Transmission Date: 20250716
  Serious: Yes (Other)
  Sender: PFIZER
  Company Number: GB-002147023-NVSC2024GB183946

PATIENT
  Age: 41 Year
  Sex: Female

DRUGS (91)
  1. RITUXIMAB [Suspect]
     Active Substance: RITUXIMAB
  2. SULFASALAZINE [Suspect]
     Active Substance: SULFASALAZINE
     Indication: Chronic spontaneous urticaria
  3. SULFASALAZINE [Suspect]
     Active Substance: SULFASALAZINE
     Indication: Autoimmune hypothyroidism
  4. AZATHIOPRINE [Suspect]
     Active Substance: AZATHIOPRINE
  5. AZATHIOPRINE [Suspect]
     Active Substance: AZATHIOPRINE
  6. AZATHIOPRINE [Suspect]
     Active Substance: AZATHIOPRINE
  7. AZATHIOPRINE [Suspect]
     Active Substance: AZATHIOPRINE
  8. AZATHIOPRINE [Suspect]
     Active Substance: AZATHIOPRINE
  9. AZATHIOPRINE [Suspect]
     Active Substance: AZATHIOPRINE
  10. AZATHIOPRINE [Suspect]
     Active Substance: AZATHIOPRINE
  11. AZATHIOPRINE [Suspect]
     Active Substance: AZATHIOPRINE
  12. AZATHIOPRINE [Suspect]
     Active Substance: AZATHIOPRINE
  13. AZATHIOPRINE [Suspect]
     Active Substance: AZATHIOPRINE
  14. AZATHIOPRINE [Suspect]
     Active Substance: AZATHIOPRINE
  15. AZATHIOPRINE [Suspect]
     Active Substance: AZATHIOPRINE
  16. AZATHIOPRINE [Suspect]
     Active Substance: AZATHIOPRINE
  17. AZATHIOPRINE [Suspect]
     Active Substance: AZATHIOPRINE
  18. AZATHIOPRINE [Suspect]
     Active Substance: AZATHIOPRINE
  19. AZATHIOPRINE [Suspect]
     Active Substance: AZATHIOPRINE
  20. AZATHIOPRINE [Suspect]
     Active Substance: AZATHIOPRINE
  21. AZATHIOPRINE [Suspect]
     Active Substance: AZATHIOPRINE
  22. AZATHIOPRINE [Suspect]
     Active Substance: AZATHIOPRINE
  23. AZATHIOPRINE [Suspect]
     Active Substance: AZATHIOPRINE
  24. AZATHIOPRINE [Suspect]
     Active Substance: AZATHIOPRINE
  25. AZATHIOPRINE [Suspect]
     Active Substance: AZATHIOPRINE
  26. AZATHIOPRINE [Suspect]
     Active Substance: AZATHIOPRINE
  27. AZATHIOPRINE [Suspect]
     Active Substance: AZATHIOPRINE
  28. AZATHIOPRINE [Suspect]
     Active Substance: AZATHIOPRINE
  29. AZATHIOPRINE [Suspect]
     Active Substance: AZATHIOPRINE
  30. AZATHIOPRINE [Suspect]
     Active Substance: AZATHIOPRINE
  31. AZATHIOPRINE [Suspect]
     Active Substance: AZATHIOPRINE
  32. AZATHIOPRINE [Suspect]
     Active Substance: AZATHIOPRINE
  33. AZATHIOPRINE [Suspect]
     Active Substance: AZATHIOPRINE
  34. AZATHIOPRINE [Suspect]
     Active Substance: AZATHIOPRINE
  35. AZATHIOPRINE [Suspect]
     Active Substance: AZATHIOPRINE
  36. AZATHIOPRINE [Suspect]
     Active Substance: AZATHIOPRINE
  37. AZATHIOPRINE [Suspect]
     Active Substance: AZATHIOPRINE
  38. AZATHIOPRINE [Suspect]
     Active Substance: AZATHIOPRINE
  39. AZATHIOPRINE [Suspect]
     Active Substance: AZATHIOPRINE
  40. AZATHIOPRINE [Suspect]
     Active Substance: AZATHIOPRINE
  41. AZATHIOPRINE [Suspect]
     Active Substance: AZATHIOPRINE
  42. CYCLOSPORINE [Suspect]
     Active Substance: CYCLOSPORINE
     Route: 067
  43. DAPSONE [Suspect]
     Active Substance: DAPSONE
     Indication: Antiphospholipid syndrome
     Route: 065
  44. IMURAN [Suspect]
     Active Substance: AZATHIOPRINE
     Indication: Chronic spontaneous urticaria
  45. IMURAN [Suspect]
     Active Substance: AZATHIOPRINE
  46. OMALIZUMAB [Suspect]
     Active Substance: OMALIZUMAB
     Indication: Chronic spontaneous urticaria
     Dosage: 200 MG, 1X/DAY (100 MG, BID, CAPSULE (200 MG, QD))
  47. OMALIZUMAB [Suspect]
     Active Substance: OMALIZUMAB
  48. OMALIZUMAB [Suspect]
     Active Substance: OMALIZUMAB
  49. OMALIZUMAB [Suspect]
     Active Substance: OMALIZUMAB
     Route: 065
  50. OMALIZUMAB [Suspect]
     Active Substance: OMALIZUMAB
  51. OMALIZUMAB [Suspect]
     Active Substance: OMALIZUMAB
  52. OMALIZUMAB [Suspect]
     Active Substance: OMALIZUMAB
  53. OMALIZUMAB [Suspect]
     Active Substance: OMALIZUMAB
     Dosage: 200 MG, 1X/DAY
  54. OMALIZUMAB [Suspect]
     Active Substance: OMALIZUMAB
  55. OMALIZUMAB [Suspect]
     Active Substance: OMALIZUMAB
     Dosage: 200 MG, 1X/DAY (QD)
  56. OMALIZUMAB [Suspect]
     Active Substance: OMALIZUMAB
     Dosage: 300 MG, 1X/DAY (QD)
  57. OMALIZUMAB [Suspect]
     Active Substance: OMALIZUMAB
  58. OMALIZUMAB [Suspect]
     Active Substance: OMALIZUMAB
     Dosage: 200 MG, 1X/DAY (200 MG QD OR 100 MG, BID)
  59. OMALIZUMAB [Suspect]
     Active Substance: OMALIZUMAB
  60. OMALIZUMAB [Suspect]
     Active Substance: OMALIZUMAB
  61. OMALIZUMAB [Suspect]
     Active Substance: OMALIZUMAB
  62. OMALIZUMAB [Suspect]
     Active Substance: OMALIZUMAB
     Dosage: 200 MG, DAILY (100 MG, BID, CAPSULE (200 MG, QD)
  63. OMALIZUMAB [Suspect]
     Active Substance: OMALIZUMAB
     Dosage: 200 MG, 1X/DAY (200 MG, QD (100 MG, BID))
  64. OMALIZUMAB [Suspect]
     Active Substance: OMALIZUMAB
     Dosage: 200 MG, DAILY (100 MG, BID, CAPSULE (200 MG, QD)
  65. OMALIZUMAB [Suspect]
     Active Substance: OMALIZUMAB
  66. OMALIZUMAB [Suspect]
     Active Substance: OMALIZUMAB
  67. OMALIZUMAB [Suspect]
     Active Substance: OMALIZUMAB
  68. OMALIZUMAB [Suspect]
     Active Substance: OMALIZUMAB
  69. OMALIZUMAB [Suspect]
     Active Substance: OMALIZUMAB
     Dosage: 200 MG, 1X/DAY (100 MG, BID (200 MG QD)
  70. OMALIZUMAB [Suspect]
     Active Substance: OMALIZUMAB
  71. OMALIZUMAB [Suspect]
     Active Substance: OMALIZUMAB
  72. OMALIZUMAB [Suspect]
     Active Substance: OMALIZUMAB
  73. OMALIZUMAB [Suspect]
     Active Substance: OMALIZUMAB
  74. OMALIZUMAB [Suspect]
     Active Substance: OMALIZUMAB
  75. OMALIZUMAB [Suspect]
     Active Substance: OMALIZUMAB
     Dosage: 200 MG, 1X/DAY (100 MG, BID (200 MG QD)
  76. OMALIZUMAB [Suspect]
     Active Substance: OMALIZUMAB
  77. OMALIZUMAB [Suspect]
     Active Substance: OMALIZUMAB
  78. OMALIZUMAB [Suspect]
     Active Substance: OMALIZUMAB
  79. OMALIZUMAB [Suspect]
     Active Substance: OMALIZUMAB
  80. OMALIZUMAB [Suspect]
     Active Substance: OMALIZUMAB
  81. OMALIZUMAB [Suspect]
     Active Substance: OMALIZUMAB
  82. MYCOPHENOLATE MOFETIL [Suspect]
     Active Substance: MYCOPHENOLATE MOFETIL
  83. PREDNISOLONE [Suspect]
     Active Substance: PREDNISOLONE
     Indication: Chronic spontaneous urticaria
  84. PREDNISOLONE [Suspect]
     Active Substance: PREDNISOLONE
     Route: 065
  85. PREDNISOLONE [Suspect]
     Active Substance: PREDNISOLONE
  86. PREDNISOLONE [Suspect]
     Active Substance: PREDNISOLONE
  87. PREDNISOLONE [Suspect]
     Active Substance: PREDNISOLONE
  88. PREDNISOLONE [Suspect]
     Active Substance: PREDNISOLONE
  89. RITUXIMAB [Suspect]
     Active Substance: RITUXIMAB
  90. ENOXAPARIN [Concomitant]
     Active Substance: ENOXAPARIN
     Indication: Autoimmune hypothyroidism
  91. ENOXAPARIN [Concomitant]
     Active Substance: ENOXAPARIN
     Indication: Antiphospholipid syndrome

REACTIONS (6)
  - Angioedema [Unknown]
  - Mental disorder [Unknown]
  - Emotional distress [Unknown]
  - Chronic spontaneous urticaria [Unknown]
  - Disease recurrence [Unknown]
  - Treatment failure [Unknown]
